FAERS Safety Report 20189674 (Version 2)
Quarter: 2021Q4

REPORT INFORMATION
  Report Type: Spontaneous
  Country: CN (occurrence: CN)
  Receive Date: 20211215
  Receipt Date: 20211221
  Transmission Date: 20220304
  Serious: Yes (Other)
  Sender: FDA-Public Use
  Company Number: CN-BAYER-2021A264257

PATIENT
  Age: 74 Year
  Sex: Male

DRUGS (3)
  1. STIVARGA [Suspect]
     Active Substance: REGORAFENIB
     Indication: Colorectal cancer
     Dosage: 80 MG, QD
     Route: 048
     Dates: start: 20200929, end: 202104
  2. STIVARGA [Suspect]
     Active Substance: REGORAFENIB
     Indication: Colorectal cancer
     Dosage: 40 MG, TID
     Route: 048
     Dates: start: 202104
  3. TISLELIZUMAB [Concomitant]
     Active Substance: TISLELIZUMAB
     Dosage: UNK

REACTIONS (8)
  - Metastases to liver [Recovering/Resolving]
  - Hepatic failure [None]
  - Hypothyroidism [None]
  - Palmar-plantar erythrodysaesthesia syndrome [Recovering/Resolving]
  - Renal cyst [None]
  - Cholelithiasis [None]
  - Malnutrition [None]
  - Off label use [None]

NARRATIVE: CASE EVENT DATE: 20200929
